FAERS Safety Report 18242349 (Version 2)
Quarter: 2023Q4

REPORT INFORMATION
  Report Type: Spontaneous
  Country: FR (occurrence: FR)
  Receive Date: 20200908
  Receipt Date: 20231010
  Transmission Date: 20240110
  Serious: Yes (Death)
  Sender: FDA-Public Use
  Company Number: None

PATIENT
  Age: 87 Year
  Sex: Female
  Weight: 66 kg

DRUGS (13)
  1. GEMCITABINE [Suspect]
     Active Substance: GEMCITABINE
     Indication: Adult T-cell lymphoma/leukaemia
     Dosage: 1600 MG, SINGLE
     Route: 042
     Dates: start: 20200723, end: 20200723
  2. TRUXIMA [Suspect]
     Active Substance: RITUXIMAB-ABBS
     Indication: Adult T-cell lymphoma/leukaemia
     Dosage: 700 MG, SINGLE
     Route: 042
     Dates: start: 20200722, end: 20200722
  3. OXALIPLATIN [Suspect]
     Active Substance: OXALIPLATIN
     Indication: Adult T-cell lymphoma/leukaemia
     Dosage: 160 MG, SINGLE
     Route: 042
     Dates: start: 20200723, end: 20200723
  4. ESCITALOPRAM [Concomitant]
     Active Substance: ESCITALOPRAM OXALATE
  5. KARDEGIC [Concomitant]
     Active Substance: ASPIRIN DL-LYSINE
  6. PROPRANOLOL HYDROCHLORIDE [Concomitant]
     Active Substance: PROPRANOLOL HYDROCHLORIDE
  7. BROMAZEPAM [Concomitant]
     Active Substance: BROMAZEPAM
  8. LEVOTHYROXINE [Concomitant]
     Active Substance: LEVOTHYROXINE
  9. OXAZEPAM [Concomitant]
     Active Substance: OXAZEPAM
  10. SITAGLIPTIN [Concomitant]
     Active Substance: SITAGLIPTIN
  11. PHLOROGLUCINOL\1,3,5-TRIMETHOXYBENZENE [Concomitant]
     Active Substance: PHLOROGLUCINOL\1,3,5-TRIMETHOXYBENZENE
  12. REPAGLINIDE [Concomitant]
     Active Substance: REPAGLINIDE
  13. MOVICOL [Concomitant]
     Active Substance: POLYETHYLENE GLYCOL 3350\POTASSIUM CHLORIDE\SODIUM BICARBONATE\SODIUM CHLORIDE

REACTIONS (5)
  - Transaminases increased [Fatal]
  - Acute respiratory failure [Fatal]
  - Agitation [Fatal]
  - Shock [Fatal]
  - Pulmonary embolism [Fatal]

NARRATIVE: CASE EVENT DATE: 20200723
